FAERS Safety Report 7007610-6 (Version None)
Quarter: 2010Q3

REPORT INFORMATION
  Report Type: 
  Country: None (occurrence: None)
  Receive Date: 20100922
  Receipt Date: 20100913
  Transmission Date: 20110219
  Serious: Yes (Hospitalization, Other)
  Sender: FDA-Public Use
  Company Number: DE-AMGEN-QUU427491

PATIENT
  Sex: Male

DRUGS (9)
  1. CINACALCET HYDROCHLORIDE [Suspect]
     Indication: HYPERPARATHYROIDISM PRIMARY
     Route: 048
     Dates: start: 20050921
  2. DIOVAN HCT [Concomitant]
     Route: 048
     Dates: start: 20000801
  3. CALCIUM [Concomitant]
     Route: 048
  4. UNKNOWN DRUG[INGREDIENT UNKNOWN] [Concomitant]
     Route: 048
     Dates: start: 20070117
  5. ASPIRIN [Concomitant]
     Route: 048
     Dates: start: 20070411
  6. AMLODIPINE [Concomitant]
     Route: 048
     Dates: start: 20070411
  7. SIMVASTATIN [Concomitant]
     Route: 048
     Dates: start: 20070411
  8. METOPROLOL SUCCINATE [Concomitant]
     Route: 048
     Dates: start: 20090225
  9. PANTOPRAZOLE [Concomitant]
     Route: 048
     Dates: start: 20090826

REACTIONS (6)
  - ACUTE MYOCARDIAL INFARCTION [None]
  - ANGINA PECTORIS [None]
  - DRUG INTERACTION [None]
  - NEPHROLITHIASIS [None]
  - PLEURAL DISORDER [None]
  - TETANY [None]
